FAERS Safety Report 8873864 (Version 1)
Quarter: 2012Q4

REPORT INFORMATION
  Report Type: 
  Country: AU (occurrence: AU)
  Receive Date: 20121030
  Receipt Date: 20121030
  Transmission Date: 20130627
  Serious: Yes (Death, Hospitalization)
  Sender: FDA-Public Use
  Company Number: AU-WATSON-2012-18349

PATIENT

DRUGS (1)
  1. PREDNISOLONE (UNKNOWN) [Suspect]
     Indication: EPILEPSY
     Dosage: high dose
     Route: 048

REACTIONS (1)
  - Pyrexia [Unknown]
